FAERS Safety Report 12946570 (Version 6)
Quarter: 2018Q1

REPORT INFORMATION
  Report Type: Report from Study
  Country: BR (occurrence: BR)
  Receive Date: 20161116
  Receipt Date: 20180321
  Transmission Date: 20180508
  Serious: Yes (Hospitalization, Other)
  Sender: FDA-Public Use
  Company Number: PHHY2016BR156876

PATIENT
  Age: 79 Year
  Sex: Female
  Weight: 48 kg

DRUGS (4)
  1. VELIJA [Concomitant]
     Active Substance: DULOXETINE HYDROCHLORIDE
     Indication: PARKINSON^S DISEASE
     Dosage: 1 DF, QD (STARTED 3 YEARS AGO)
     Route: 048
  2. ADDERA D3 [Concomitant]
     Active Substance: CHOLECALCIFEROL
     Indication: OSTEOPOROSIS
     Dosage: 10 DRP, QD
     Route: 048
     Dates: start: 201712
  3. PROLOPA [Concomitant]
     Active Substance: BENSERAZIDE\LEVODOPA
     Indication: PARKINSON^S DISEASE
     Dosage: 3 DF, QD (STARTED FROM 1 YEAR AGO)
     Route: 048
  4. ACLASTA [Suspect]
     Active Substance: ZOLEDRONIC ACID
     Indication: OSTEOPOROSIS
     Dosage: 1 DF, Q12MO
     Route: 042
     Dates: start: 20160115, end: 20160115

REACTIONS (10)
  - Hypersensitivity [Unknown]
  - Pain [Recovering/Resolving]
  - Septic shock [Not Recovered/Not Resolved]
  - Tooth fracture [Recovering/Resolving]
  - Post procedural pneumonia [Recovering/Resolving]
  - Gait disturbance [Not Recovered/Not Resolved]
  - Femur fracture [Not Recovered/Not Resolved]
  - Upper limb fracture [Unknown]
  - Fall [Not Recovered/Not Resolved]
  - Dizziness [Not Recovered/Not Resolved]

NARRATIVE: CASE EVENT DATE: 2016
